FAERS Safety Report 4766186-4 (Version None)
Quarter: 2005Q3

REPORT INFORMATION
  Report Type: 
  Country: None (occurrence: None)
  Receive Date: 20050912
  Receipt Date: 20050523
  Transmission Date: 20060218
  Serious: Yes (Hospitalization, Disabling)
  Sender: FDA-Public Use
  Company Number: US-MERCK-0505USA02947

PATIENT
  Age: 58 Year
  Sex: Female
  Weight: 74 kg

DRUGS (10)
  1. VIOXX [Suspect]
     Indication: ARTHRITIS
     Route: 048
     Dates: start: 20020101
  2. VIOXX [Suspect]
     Route: 048
     Dates: start: 20021126, end: 20040501
  3. ASPIRIN [Concomitant]
     Route: 065
  4. PAXIL [Concomitant]
     Route: 065
  5. EXTRA STRENGTH TYLENOL [Concomitant]
     Route: 065
  6. VERAPAMIL MSD LP [Concomitant]
     Route: 048
  7. LIPITOR [Concomitant]
     Route: 065
  8. PREMARIN [Concomitant]
     Route: 065
  9. VITAMINS (UNSPECIFIED) [Concomitant]
     Route: 065
  10. CALCIUM (UNSPECIFIED) [Concomitant]
     Route: 065

REACTIONS (20)
  - ACUTE CORONARY SYNDROME [None]
  - ACUTE MYOCARDIAL INFARCTION [None]
  - ACUTE SINUSITIS [None]
  - ANGINA UNSTABLE [None]
  - CARDIAC DISORDER [None]
  - CARDIAC FAILURE CONGESTIVE [None]
  - CARDIOMEGALY [None]
  - CHEST PAIN [None]
  - CORONARY ARTERY DISEASE [None]
  - DERMATITIS [None]
  - DYSPNOEA [None]
  - FLANK PAIN [None]
  - HYPERTENSION [None]
  - NON-CARDIAC CHEST PAIN [None]
  - OBSTRUCTIVE AIRWAYS DISORDER [None]
  - PAIN IN EXTREMITY [None]
  - RECTAL HAEMORRHAGE [None]
  - ROAD TRAFFIC ACCIDENT [None]
  - ULCER HAEMORRHAGE [None]
  - VENTRICULAR DYSFUNCTION [None]
